FAERS Safety Report 9523381 (Version 3)
Quarter: 2014Q1

REPORT INFORMATION
  Report Type: Spontaneous
  Country: US (occurrence: US)
  Receive Date: 20130913
  Receipt Date: 20140218
  Transmission Date: 20141002
  Serious: Yes (Hospitalization)
  Sender: FDA-Public Use
  Company Number: US-B.I. PHARMACEUTICALS,INC./RIDGEFIELD-2013-BI-28003BP

PATIENT
  Age: 71 Year
  Sex: Female
  Weight: 108.86 kg

DRUGS (17)
  1. PRADAXA [Suspect]
     Indication: ATRIAL FIBRILLATION
     Dates: start: 20110310, end: 20110716
  2. ALLOPURINOL [Concomitant]
     Dosage: 300 MG
     Route: 048
     Dates: start: 2008
  3. PRAVASTATIN [Concomitant]
     Dosage: 40 MG
     Route: 048
     Dates: start: 2007
  4. HYDROCODONE [Concomitant]
     Dates: start: 2007
  5. GLIMEPIRIDE [Concomitant]
     Dosage: 4 MG
     Route: 048
     Dates: start: 2008, end: 2011
  6. LANTUS [Concomitant]
     Dosage: 8 U
     Route: 058
     Dates: start: 2008
  7. COREG [Concomitant]
     Dosage: 100 MG
     Route: 048
     Dates: start: 2008
  8. IRON SULFATE [Concomitant]
  9. LASIX [Concomitant]
     Dosage: 40 MG
     Route: 048
     Dates: start: 2005
  10. MULTIVITAMIN [Concomitant]
  11. SOMA [Concomitant]
     Dosage: 350 MG
     Route: 048
     Dates: start: 2005, end: 2011
  12. CIPRO [Concomitant]
     Dosage: 500 MG
     Route: 048
  13. CITALOPRAM [Concomitant]
     Dosage: 20 MG
     Route: 048
     Dates: start: 2011
  14. AMLODIPINE [Concomitant]
     Dosage: 5 MG
     Route: 048
     Dates: start: 2008, end: 2011
  15. FEOSOL [Concomitant]
     Route: 048
  16. ACETAMINOPHEN [Concomitant]
     Route: 048
  17. SPIRONOLACTONE [Concomitant]
     Dosage: 25 MG
     Route: 048

REACTIONS (2)
  - Gastrointestinal haemorrhage [Unknown]
  - Anaemia [Unknown]
